FAERS Safety Report 9016943 (Version 2)
Quarter: 2013Q1

REPORT INFORMATION
  Report Type: Spontaneous
  Country: CO (occurrence: CO)
  Receive Date: 20130117
  Receipt Date: 20130219
  Transmission Date: 20140127
  Serious: Yes (Other)
  Sender: FDA-Public Use
  Company Number: PHHY2012CO113464

PATIENT
  Age: 81 None
  Sex: Female
  Weight: 62 kg

DRUGS (5)
  1. ACLASTA [Suspect]
     Indication: OSTEOPOROSIS
     Dosage: UNK UKN, ANNUAL
     Route: 042
     Dates: start: 20110921
  2. ACLASTA [Suspect]
     Dosage: UNK UKN, ANNUAL
     Route: 042
     Dates: start: 201209
  3. ACLASTA [Suspect]
     Dosage: UNK
     Route: 042
     Dates: start: 201302
  4. BIOCALCIUM [Concomitant]
     Dosage: UNK UKN, UNK
  5. CALCIUM [Concomitant]
     Dosage: UNK UKN, UNK

REACTIONS (4)
  - Fracture [Recovering/Resolving]
  - Pelvic fracture [Recovering/Resolving]
  - Arthralgia [Recovering/Resolving]
  - Inappropriate schedule of drug administration [Unknown]
